FAERS Safety Report 7095372-6 (Version None)
Quarter: 2010Q4

REPORT INFORMATION
  Report Type: 
  Country: None (occurrence: None)
  Receive Date: 20101111
  Receipt Date: 20101103
  Transmission Date: 20110411
  Serious: Yes (Other)
  Sender: FDA-Public Use
  Company Number: US-JNJFOC-20100805941

PATIENT
  Sex: Male
  Weight: 72.58 kg

DRUGS (4)
  1. STELARA [Suspect]
     Indication: PSORIASIS
     Route: 058
  2. STELARA [Suspect]
     Route: 058
  3. REMICADE [Suspect]
     Indication: PSORIASIS
     Route: 042
  4. REGULAR INSULIN [Concomitant]
     Indication: DIABETES MELLITUS

REACTIONS (2)
  - ANOGENITAL WARTS [None]
  - CEREBROVASCULAR ACCIDENT [None]
